FAERS Safety Report 17457669 (Version 1)
Quarter: 2020Q1

REPORT INFORMATION
  Report Type: Spontaneous
  Country: FR (occurrence: FR)
  Receive Date: 20200225
  Receipt Date: 20200225
  Transmission Date: 20200409
  Serious: Yes (Life-Threatening)
  Sender: FDA-Public Use
  Company Number: FR-JNJFOC-20200231830

PATIENT
  Age: 63 Year
  Sex: Male
  Weight: 75 kg

DRUGS (10)
  1. MACROGOL [Concomitant]
     Active Substance: POLYETHYLENE GLYCOLS
     Route: 065
  2. XARELTO [Concomitant]
     Active Substance: RIVAROXABAN
     Route: 065
  3. HALDOL [Suspect]
     Active Substance: HALOPERIDOL
     Indication: SCHIZOPHRENIA
     Route: 048
     Dates: start: 20191206
  4. THERALENE [Suspect]
     Active Substance: TRIMEPRAZINE
     Indication: SEDATION
     Route: 048
     Dates: start: 20191206, end: 20200205
  5. LOXAPAC                            /00401802/ [Suspect]
     Active Substance: LOXAPINE SUCCINATE
     Indication: PSYCHOTIC DISORDER
     Route: 048
     Dates: start: 20191205, end: 20200205
  6. DEPAKINE                           /00228502/ [Concomitant]
     Active Substance: VALPROATE SODIUM
     Route: 065
  7. VALIUM [Concomitant]
     Active Substance: DIAZEPAM
     Route: 065
  8. LEPTICUR [Suspect]
     Active Substance: TROPATEPINE HYDROCHLORIDE
     Indication: PARKINSONISM
     Route: 048
     Dates: start: 20191203, end: 20200205
  9. JANUMET [Concomitant]
     Active Substance: METFORMIN HYDROCHLORIDE\SITAGLIPTIN PHOSPHATE
     Route: 065
  10. LANSOYL [Concomitant]
     Active Substance: MINERAL OIL
     Route: 065

REACTIONS (1)
  - Colitis ischaemic [Recovered/Resolved]

NARRATIVE: CASE EVENT DATE: 20200123
